FAERS Safety Report 14088779 (Version 1)
Quarter: 2017Q4

REPORT INFORMATION
  Report Type: Spontaneous
  Country: US (occurrence: US)
  Receive Date: 20171013
  Receipt Date: 20171013
  Transmission Date: 20180321
  Serious: Yes (Death)
  Sender: FDA-Public Use
  Company Number: US-NAPPMUNDI-2013798

PATIENT
  Age: 17 Year
  Sex: Male

DRUGS (1)
  1. OXYCONTIN [Suspect]
     Active Substance: OXYCODONE HYDROCHLORIDE
     Indication: PRODUCT USED FOR UNKNOWN INDICATION
     Dosage: (INJECTED TWICE)
     Route: 042
     Dates: end: 200107

REACTIONS (2)
  - Victim of homicide [Fatal]
  - Overdose [Fatal]

NARRATIVE: CASE EVENT DATE: 200107
